FAERS Safety Report 6700719-3 (Version None)
Quarter: 2010Q2

REPORT INFORMATION
  Report Type: 
  Country: None (occurrence: None)
  Receive Date: 20100428
  Receipt Date: 20100423
  Transmission Date: 20101027
  Serious: Yes (Life-Threatening)
  Sender: FDA-Public Use
  Company Number: HR-MERCK-1004USA03957

PATIENT
  Age: 44 Year
  Sex: Female
  Weight: 70 kg

DRUGS (4)
  1. FOSAMAX [Suspect]
     Indication: OSTEOPOROSIS
     Route: 048
     Dates: start: 20060101, end: 20100101
  2. LEVOTHYROXINE SODIUM [Concomitant]
     Indication: HYPOTHYROIDISM
     Route: 048
     Dates: start: 19900101
  3. TRITACE [Concomitant]
     Indication: HYPERTENSION
     Route: 048
     Dates: start: 20000101
  4. DECORTIN [Concomitant]
     Indication: ARTHRITIS
     Route: 048
     Dates: start: 20050101

REACTIONS (1)
  - ATRIAL FIBRILLATION [None]
